FAERS Safety Report 6965085-7 (Version None)
Quarter: 2010Q3

REPORT INFORMATION
  Report Type: 
  Country: None (occurrence: None)
  Receive Date: 20100903
  Receipt Date: 20100824
  Transmission Date: 20110219
  Serious: Yes (Other)
  Sender: FDA-Public Use
  Company Number: US-JNJFOC-20100807999

PATIENT
  Sex: Female
  Weight: 97.98 kg

DRUGS (11)
  1. REMICADE [Suspect]
     Indication: CROHN'S DISEASE
     Route: 042
  2. REMICADE [Suspect]
     Route: 042
  3. WELCHOL [Concomitant]
     Indication: CROHN'S DISEASE
  4. ENTOCORT EC [Concomitant]
     Indication: CROHN'S DISEASE
  5. PENTASA [Concomitant]
     Indication: CROHN'S DISEASE
  6. DARVOCET [Concomitant]
     Indication: PAIN
  7. MAXALT [Concomitant]
     Indication: MIGRAINE
  8. ALBUTEROL [Concomitant]
     Indication: DYSPNOEA
  9. PROZAC [Concomitant]
     Indication: DEPRESSION
  10. REMERON [Concomitant]
     Indication: DEPRESSION
  11. HYDROCHLOROTHIAZIDE [Concomitant]

REACTIONS (3)
  - PAIN [None]
  - PARAESTHESIA [None]
  - RHEUMATOID ARTHRITIS [None]
